FAERS Safety Report 5836274-X (Version None)
Quarter: 2008Q3

REPORT INFORMATION
  Report Type: 
  Country: None (occurrence: None)
  Receive Date: 20080807
  Receipt Date: 20080728
  Transmission Date: 20090109
  Serious: Yes (Other)
  Sender: FDA-Public Use
  Company Number: GB-BRISTOL-MYERS SQUIBB COMPANY-14290779

PATIENT
  Age: 70 Year
  Sex: Male

DRUGS (2)
  1. HOLOXAN [Suspect]
     Route: 042
     Dates: start: 20080725
  2. MESNA [Suspect]
     Dosage: 1 DOSAGE FORM = 3 G/M2.
     Route: 042
     Dates: start: 20080725

REACTIONS (1)
  - CYSTITIS HAEMORRHAGIC [None]
